FAERS Safety Report 25455206 (Version 1)
Quarter: 2025Q2

REPORT INFORMATION
  Report Type: Report from Study
  Country: BR (occurrence: BR)
  Receive Date: 20250619
  Receipt Date: 20250619
  Transmission Date: 20250717
  Serious: Yes (Other)
  Sender: JOHNSON AND JOHNSON
  Company Number: BR-JNJFOC-20250618231

PATIENT
  Age: 14 Year
  Sex: Female

DRUGS (2)
  1. INFLIXIMAB [Suspect]
     Active Substance: INFLIXIMAB
     Indication: Crohn^s disease
     Route: 041
     Dates: start: 20240410
  2. INFLIXIMAB [Suspect]
     Active Substance: INFLIXIMAB
     Dosage: 4 AMPOULES IN 500ML OF 0.9% SALINE SOLUTION
     Route: 041
     Dates: start: 202504

REACTIONS (7)
  - Haematochezia [Unknown]
  - Constipation [Unknown]
  - Faecal calprotectin increased [Unknown]
  - Iron deficiency [Unknown]
  - C-reactive protein decreased [Unknown]
  - Mass [Unknown]
  - Anal fissure [Unknown]

NARRATIVE: CASE EVENT DATE: 20250501
